FAERS Safety Report 10774296 (Version 2)
Quarter: 2015Q1

REPORT INFORMATION
  Report Type: Report from Study
  Country: BR (occurrence: BR)
  Receive Date: 20150209
  Receipt Date: 20150313
  Transmission Date: 20150721
  Serious: Yes (Death, Hospitalization, Other)
  Sender: FDA-Public Use
  Company Number: BR-ABBVIE-15K-020-1344219-00

PATIENT
  Age: 76 Year
  Sex: Female
  Weight: 60 kg

DRUGS (1)
  1. HUMIRA [Suspect]
     Active Substance: ADALIMUMAB
     Indication: RHEUMATOID ARTHRITIS
     Route: 058
     Dates: start: 20131128, end: 201403

REACTIONS (5)
  - Lung disorder [Unknown]
  - Cerebrovascular accident [Unknown]
  - Renal disorder [Unknown]
  - Cardiac arrest [Unknown]
  - Multi-organ failure [Fatal]

NARRATIVE: CASE EVENT DATE: 201409
